FAERS Safety Report 5831306 (Version 3)
Quarter: 2020Q3

REPORT INFORMATION
  Report Type: Report from Study
  Country: US (occurrence: US)
  Receive Date: 20050706
  Receipt Date: 20050912
  Transmission Date: 20201104
  Serious: Yes (Death, Life-Threatening, Hospitalization, Other)
  Sender: FDA-Public Use
  Company Number: US-JNJFOC-20050606593

PATIENT
  Age: 67 Year
  Sex: Male

DRUGS (12)
  1. ASPIRIN. [Concomitant]
     Active Substance: ASPIRIN
     Route: 048
  2. ABCIXIMAB [Suspect]
     Active Substance: ABCIXIMAB
     Indication: ISCHAEMIC STROKE
     Route: 042
  3. ABCIXIMAB [Suspect]
     Active Substance: ABCIXIMAB
     Indication: ISCHAEMIC STROKE
     Route: 042
  4. COZAAR [Concomitant]
     Active Substance: LOSARTAN POTASSIUM
     Route: 048
  5. MORPHINE [Concomitant]
     Active Substance: MORPHINE
     Dosage: FIVE MG EVERY THREE HOURS AS NEEDED/
     Route: 042
  6. LOVENOX [Concomitant]
     Active Substance: ENOXAPARIN SODIUM
     Route: 058
  7. PLAVIX [Concomitant]
     Active Substance: CLOPIDOGREL BISULFATE
     Route: 048
  8. LOPRESOR [Concomitant]
     Active Substance: METOPROLOL
     Route: 048
  9. NORVASC [Concomitant]
     Active Substance: AMLODIPINE BESYLATE
  10. PLACEBO [Suspect]
     Active Substance: UNSPECIFIED INGREDIENT
     Indication: ISCHAEMIC STROKE
     Route: 042
  11. PLACEBO [Suspect]
     Active Substance: UNSPECIFIED INGREDIENT
     Indication: ISCHAEMIC STROKE
     Route: 042
  12. ZOCOR [Concomitant]
     Active Substance: SIMVASTATIN
     Route: 048

REACTIONS (4)
  - Carotid artery stenosis [Recovered/Resolved]
  - Haemorrhage intracranial [Fatal]
  - Intraventricular haemorrhage [Fatal]
  - Cerebrovascular accident [Not Recovered/Not Resolved]

NARRATIVE: CASE EVENT DATE: 20050410
